FAERS Safety Report 9638519 (Version 2)
Quarter: 2014Q1

REPORT INFORMATION
  Report Type: Not Available
  Country: AU (occurrence: AU)
  Receive Date: 20131022
  Receipt Date: 20140225
  Transmission Date: 20141002
  Serious: Yes (Hospitalization, Other)
  Sender: FDA-Public Use
  Company Number: AU-PURDUE-USA-2013-0107618

PATIENT
  Sex: Female

DRUGS (5)
  1. OXYCODONE HYDROCHLORIDE (SIMILAR TO NDA 22-272) [Suspect]
     Indication: NEURALGIA
     Dosage: UNK
     Route: 048
     Dates: start: 2013, end: 2013
  2. TARGIN [Suspect]
     Indication: NEURALGIA
     Dosage: UNK
     Route: 048
     Dates: start: 2013, end: 2013
  3. PROTOS /00737201/ [Suspect]
     Indication: BONE DISORDER
     Dosage: 2 UNK, UNK
     Route: 048
  4. DUROGESIC [Suspect]
     Indication: PRODUCT USED FOR UNKNOWN INDICATION
  5. DOTHEP [Suspect]
     Indication: PRODUCT USED FOR UNKNOWN INDICATION

REACTIONS (11)
  - Squamous cell carcinoma [Unknown]
  - Overdose [Unknown]
  - Alopecia [Unknown]
  - Dysgeusia [Unknown]
  - Tooth infection [Unknown]
  - Onychomycosis [Unknown]
  - Neuralgia [Unknown]
  - Nausea [Unknown]
  - Weight decreased [Unknown]
  - Decreased appetite [Unknown]
  - Arthralgia [Unknown]
